FAERS Safety Report 14539110 (Version 1)
Quarter: 2018Q1

REPORT INFORMATION
  Report Type: Spontaneous
  Country: US (occurrence: US)
  Receive Date: 20180214
  Receipt Date: 20180214
  Transmission Date: 20180509
  Serious: Yes (Death)
  Sender: FDA-Public Use
  Company Number: None

PATIENT
  Age: 14 Year

DRUGS (1)
  1. VIGABATRIN POWDER 500MG OTHER [Suspect]
     Active Substance: VIGABATRIN
     Indication: EPILEPSY
     Dosage: EVERY MORNING
     Route: 048
     Dates: start: 20100130, end: 20180123

REACTIONS (1)
  - Death [None]

NARRATIVE: CASE EVENT DATE: 20180212
